FAERS Safety Report 9290735 (Version 1)
Quarter: 2013Q2

REPORT INFORMATION
  Report Type: Spontaneous
  Country: US (occurrence: US)
  Receive Date: 20130515
  Receipt Date: 20130515
  Transmission Date: 20140414
  Serious: Yes (Hospitalization)
  Sender: FDA-Public Use
  Company Number: PHHY2013US047545

PATIENT
  Age: 67 Year
  Sex: Female

DRUGS (4)
  1. ZIPRASIDONE [Suspect]
     Indication: BIPOLAR II DISORDER
     Dosage: 200 MG
  2. ZIPRASIDONE [Suspect]
     Dosage: 80 MG
  3. CLONAZEPAM [Concomitant]
     Indication: ANXIETY
     Dosage: 0.5 MG, BID
  4. CLONAZEPAM [Concomitant]
     Indication: AGITATION

REACTIONS (8)
  - Akathisia [Recovered/Resolved]
  - Restlessness [Recovered/Resolved]
  - Suicidal ideation [Unknown]
  - Anxiety [Recovered/Resolved]
  - Agitation [Recovered/Resolved]
  - Psychiatric symptom [Recovered/Resolved]
  - Insomnia [Recovered/Resolved]
  - Depression [Recovered/Resolved]
